FAERS Safety Report 15385177 (Version 2)
Quarter: 2019Q4

REPORT INFORMATION
  Report Type: Report from Study
  Country: DE (occurrence: DE)
  Receive Date: 20180914
  Receipt Date: 20191122
  Transmission Date: 20200122
  Serious: Yes (Life-Threatening, Hospitalization)
  Sender: FDA-Public Use
  Company Number: DE-AMGEN-DEUNI2018126466

PATIENT
  Age: 74 Year
  Sex: Male
  Weight: 74 kg

DRUGS (26)
  1. IRINOTECAN [Suspect]
     Active Substance: IRINOTECAN
     Dosage: 334 MILLIGRAM
     Route: 065
     Dates: start: 20180615
  2. FOLINIC ACID [Suspect]
     Active Substance: LEUCOVORIN
     Dosage: 732 MILLIGRAM
     Route: 065
     Dates: start: 20180809
  3. FLUOROURACIL. [Suspect]
     Active Substance: FLUOROURACIL
     Indication: COLORECTAL CANCER METASTATIC
     Dosage: 1520 MILLIGRAM
     Route: 040
     Dates: start: 20180430
  4. FLUOROURACIL. [Suspect]
     Active Substance: FLUOROURACIL
     Dosage: 744 MILLIGRAM
     Route: 040
     Dates: start: 20180615
  5. PANITUMUMAB [Suspect]
     Active Substance: PANITUMUMAB
     Dosage: 420 MILLIGRAM
     Route: 042
     Dates: start: 20180809
  6. IRINOTECAN [Suspect]
     Active Substance: IRINOTECAN
     Indication: COLORECTAL CANCER METASTATIC
     Dosage: 342 MILLIGRAM
     Route: 065
     Dates: start: 20180430
  7. IRINOTECAN [Suspect]
     Active Substance: IRINOTECAN
     Dosage: 329 MILLIGRAM
     Route: 065
     Dates: start: 20180809
  8. AMOXICILLIN. [Concomitant]
     Active Substance: AMOXICILLIN
     Indication: PROPHYLAXIS
     Dosage: 875 MILLIGRAM, BID
     Route: 048
     Dates: start: 20180613, end: 20180620
  9. SPIRIVA [Concomitant]
     Active Substance: TIOTROPIUM BROMIDE MONOHYDRATE
     Indication: CHRONIC OBSTRUCTIVE PULMONARY DISEASE
     Dosage: 18 MUG, QD
     Route: 055
     Dates: start: 20150101
  10. BISOPROLOL-RATIOPHARM [Concomitant]
     Active Substance: BISOPROLOL
     Indication: TACHYCARDIA
     Dosage: 2.5 MILLIGRAM, QD
     Route: 048
     Dates: start: 20180517
  11. PANITUMUMAB [Suspect]
     Active Substance: PANITUMUMAB
     Dosage: 432 MILLIGRAM
     Route: 042
     Dates: start: 20180615
  12. PANITUMUMAB [Suspect]
     Active Substance: PANITUMUMAB
     Dosage: 408 MILLIGRAM
     Route: 042
     Dates: start: 20180823
  13. FOLINIC ACID [Suspect]
     Active Substance: LEUCOVORIN
     Dosage: 752 MILLIGRAM
     Route: 065
     Dates: start: 20180516
  14. FLUOROURACIL. [Suspect]
     Active Substance: FLUOROURACIL
     Dosage: 4464 MILLIGRAM
     Route: 042
     Dates: start: 20180615
  15. PANITUMUMAB [Suspect]
     Active Substance: PANITUMUMAB
     Indication: COLORECTAL CANCER METASTATIC
     Dosage: 444 MILLIGRAM
     Route: 042
     Dates: start: 20180516
  16. FLUOROURACIL. [Suspect]
     Active Substance: FLUOROURACIL
     Dosage: 4512 MILLIGRAM
     Route: 042
     Dates: start: 20180516
  17. PREDNISOLONE. [Concomitant]
     Active Substance: PREDNISOLONE
     Indication: COLITIS ULCERATIVE
     Dosage: 7.5-75 MILLIGRAM QD
     Dates: start: 20170701, end: 20180906
  18. FLUOROURACIL. [Suspect]
     Active Substance: FLUOROURACIL
     Dosage: 752 MILLIGRAM
     Route: 040
     Dates: start: 20180516
  19. FLUOROURACIL. [Suspect]
     Active Substance: FLUOROURACIL
     Dosage: 4392 MILLIGRAM
     Route: 042
     Dates: start: 20180809
  20. FENTANYL. [Concomitant]
     Active Substance: FENTANYL
     Indication: PAIN
     Dosage: 12.5 MICROGRAM
     Route: 062
     Dates: start: 20160710
  21. MINOCYCLIN-RATIOPHARM [Concomitant]
     Indication: PROPHYLAXIS
     Dosage: 50 MILLIGRAM, BID
     Route: 048
     Dates: start: 20180516
  22. IRINOTECAN [Suspect]
     Active Substance: IRINOTECAN
     Dosage: 338 MILLIGRAM
     Route: 065
     Dates: start: 20180516
  23. IRINOTECAN [Suspect]
     Active Substance: IRINOTECAN
     Dosage: 325 MILLIGRAM
     Route: 065
     Dates: start: 20180823
  24. FOLINIC ACID [Suspect]
     Active Substance: LEUCOVORIN
     Indication: COLORECTAL CANCER METASTATIC
     Dosage: 760 MILLIGRAM
     Route: 065
     Dates: start: 20180430
  25. FOLINIC ACID [Suspect]
     Active Substance: LEUCOVORIN
     Dosage: 744 MILLIGRAM
     Route: 065
     Dates: start: 20180615
  26. FLUOROURACIL. [Suspect]
     Active Substance: FLUOROURACIL
     Dosage: 2280 MILLIGRAM
     Route: 042
     Dates: start: 20180430

REACTIONS (1)
  - Colitis [Recovered/Resolved]

NARRATIVE: CASE EVENT DATE: 20180902
